FAERS Safety Report 21628463 (Version 2)
Quarter: 2022Q4

REPORT INFORMATION
  Report Type: Spontaneous
  Country: PT (occurrence: PT)
  Receive Date: 20221122
  Receipt Date: 20221228
  Transmission Date: 20230113
  Serious: Yes (Other)
  Sender: FDA-Public Use
  Company Number: PT-MYLANLABS-2022M1129485

PATIENT
  Age: 11 Year
  Sex: Male
  Weight: 50 kg

DRUGS (1)
  1. IBUPROFEN [Suspect]
     Active Substance: IBUPROFEN
     Indication: Pyrexia
     Dosage: 400 MILLIGRAM, TOOK TWO SACHETS, WITH A TIME GAP OF 8 HOURS
     Route: 048

REACTIONS (1)
  - Hallucination [Recovered/Resolved]
